FAERS Safety Report 5544568-0 (Version None)
Quarter: 2007Q4

REPORT INFORMATION
  Report Type: 
  Country: None (occurrence: None)
  Receive Date: 20071210
  Receipt Date: 20061207
  Transmission Date: 20080405
  Serious: No
  Sender: FDA-Public Use
  Company Number: US-AMGEN-KDL202791

PATIENT
  Sex: Female

DRUGS (3)
  1. ENBREL [Suspect]
     Indication: RHEUMATOID ARTHRITIS
     Route: 058
     Dates: start: 20061007
  2. METHOTREXATE [Concomitant]
     Dates: start: 20060401
  3. PLAQUENIL [Concomitant]
     Dates: start: 20060401

REACTIONS (7)
  - BLOOD PRESSURE INCREASED [None]
  - CONTUSION [None]
  - FEELING COLD [None]
  - HEADACHE [None]
  - MALAISE [None]
  - PARAESTHESIA [None]
  - URTICARIA [None]
